FAERS Safety Report 4463306-6 (Version None)
Quarter: 2004Q3

REPORT INFORMATION
  Report Type: 
  Country: None (occurrence: None)
  Receive Date: 20040930
  Receipt Date: 20040811
  Transmission Date: 20050211
  Serious: No
  Sender: FDA-Public Use
  Company Number: US-BRISTOL-MYERS SQUIBB COMPANY-12667945

PATIENT
  Age: 35 Year
  Sex: Male
  Weight: 68 kg

DRUGS (2)
  1. REYATAZ [Suspect]
     Indication: ACQUIRED IMMUNODEFICIENCY SYNDROME
     Route: 048
  2. KALETRA [Concomitant]

REACTIONS (1)
  - PYREXIA [None]
